FAERS Safety Report 5446464-6 (Version None)
Quarter: 2007Q3

REPORT INFORMATION
  Report Type: 
  Country: None (occurrence: None)
  Receive Date: 20070907
  Receipt Date: 20070831
  Transmission Date: 20080115
  Serious: Yes (Hospitalization)
  Sender: FDA-Public Use
  Company Number: AT-ASTRAZENECA-2007PK01827

PATIENT
  Age: 60 Year
  Sex: Male
  Weight: 84 kg

DRUGS (3)
  1. NEXIUM [Suspect]
     Route: 048
     Dates: start: 20070718, end: 20070729
  2. PLAVIX [Suspect]
     Route: 048
     Dates: start: 20070718, end: 20070729
  3. THROMBO ASS [Concomitant]
     Route: 048
     Dates: start: 20070301

REACTIONS (4)
  - OEDEMA PERIPHERAL [None]
  - RASH [None]
  - RASH GENERALISED [None]
  - URTICARIA [None]
